FAERS Safety Report 24390696 (Version 1)
Quarter: 2024Q4

REPORT INFORMATION
  Report Type: Report from Study
  Country: FR (occurrence: FR)
  Receive Date: 20241003
  Receipt Date: 20241003
  Transmission Date: 20250115
  Serious: Yes (Hospitalization)
  Sender: SERVIER
  Company Number: FR-SERVIER-S24011947

PATIENT

DRUGS (9)
  1. PEGASPARGASE [Suspect]
     Active Substance: PEGASPARGASE
     Indication: Acute lymphocytic leukaemia
     Dosage: 2625 IU, D15 AND D45
     Route: 042
     Dates: start: 20211129, end: 20211231
  2. MERCAPTOPURINE [Suspect]
     Active Substance: MERCAPTOPURINE
     Indication: Acute lymphocytic leukaemia
     Dosage: 60 MG, D1 TO D14, D29 TO D42
     Route: 048
     Dates: start: 20211115, end: 20211230
  3. CYCLOPHOSPHAMIDE [Suspect]
     Active Substance: CYCLOPHOSPHAMIDE
     Indication: Acute lymphocytic leukaemia
     Dosage: 1050 MG, D1 AND D29
     Route: 042
     Dates: start: 20211115, end: 20211217
  4. VINCRISTINE [Suspect]
     Active Substance: VINCRISTINE
     Indication: Acute lymphocytic leukaemia
     Dosage: 1.5 MG, D15, D22, D43, D50 CONSOLIDATION
     Route: 042
     Dates: start: 20211129, end: 20220107
  5. CYTARABINE [Suspect]
     Active Substance: CYTARABINE
     Indication: Acute lymphocytic leukaemia
     Dosage: 30 MG, D3 AND D31
     Route: 037
     Dates: start: 20211115, end: 20211217
  6. CYTARABINE [Suspect]
     Active Substance: CYTARABINE
     Dosage: 79 MG, D3 TO D6, D10 TO D13, D31
     Route: 042
     Dates: start: 20211116, end: 20211230
  7. METHOTREXATE [Suspect]
     Active Substance: METHOTREXATE
     Indication: Acute lymphocytic leukaemia
     Dosage: 12 MG, D3 AND D31
     Route: 037
     Dates: start: 20211115, end: 20211217
  8. HYDROCORTISONE [Suspect]
     Active Substance: HYDROCORTISONE
     Indication: Acute lymphocytic leukaemia
     Dosage: 15 MG
     Route: 037
     Dates: start: 20211115, end: 20211117
  9. BACTRIM [Concomitant]
     Active Substance: SULFAMETHOXAZOLE\TRIMETHOPRIM
     Indication: Product used for unknown indication
     Dosage: 600 MG, 3X A WEEK
     Route: 048

REACTIONS (1)
  - Febrile bone marrow aplasia [Recovered/Resolved]

NARRATIVE: CASE EVENT DATE: 20220109
